FAERS Safety Report 9869171 (Version 1)
Quarter: 2014Q1

REPORT INFORMATION
  Report Type: Spontaneous
  Country: US (occurrence: US)
  Receive Date: 20140205
  Receipt Date: 20140205
  Transmission Date: 20141002
  Serious: Yes (Other)
  Sender: FDA-Public Use
  Company Number: US-ROCHE-1340388

PATIENT
  Sex: Female

DRUGS (10)
  1. XOLAIR [Suspect]
     Indication: ASTHMA
     Route: 058
  2. NAPROXEN [Suspect]
     Indication: PRODUCT USED FOR UNKNOWN INDICATION
     Route: 065
  3. HYDROCHLOROTHIAZIDE [Concomitant]
     Route: 065
  4. FLEXERIL (UNITED STATES) [Concomitant]
     Route: 065
  5. CYMBALTA [Concomitant]
     Route: 065
  6. CYMBALTA [Concomitant]
     Route: 065
  7. LOPID [Concomitant]
     Route: 065
  8. ADVAIR DISKUS [Concomitant]
     Dosage: DOSE: 250 - 50 MG
     Route: 065
  9. OMEPRAZOLE [Concomitant]
     Route: 065
  10. DILTIAZEM [Concomitant]
     Route: 065

REACTIONS (2)
  - Drug hypersensitivity [Unknown]
  - Knee arthroplasty [Unknown]
